FAERS Safety Report 15768209 (Version 1)
Quarter: 2018Q4

REPORT INFORMATION
  Report Type: Report from Study
  Country: US (occurrence: US)
  Receive Date: 20181227
  Receipt Date: 20181227
  Transmission Date: 20190205
  Serious: Yes (Hospitalization)
  Sender: FDA-Public Use
  Company Number: US-ACTELION-A-US2017-158270

PATIENT
  Age: 68 Year
  Sex: Male
  Weight: 118.82 kg

DRUGS (10)
  1. FLOMAX [Concomitant]
     Active Substance: TAMSULOSIN HYDROCHLORIDE
  2. OPSUMIT [Suspect]
     Active Substance: MACITENTAN
     Indication: PULMONARY ARTERIAL HYPERTENSION
     Dosage: 10 MG, QD
     Route: 048
     Dates: start: 201708
  3. LANTUS [Concomitant]
     Active Substance: INSULIN GLARGINE
  4. ELIQUIS [Concomitant]
     Active Substance: APIXABAN
  5. APO ROSUVASTATIN [Concomitant]
     Active Substance: ROSUVASTATIN CALCIUM
  6. LISINOPRIL. [Concomitant]
     Active Substance: LISINOPRIL
  7. HUMALOG [Concomitant]
     Active Substance: INSULIN LISPRO
  8. BABY ASPIRIN [Concomitant]
     Active Substance: ASPIRIN
  9. METFORMIN [Concomitant]
     Active Substance: METFORMIN HYDROCHLORIDE
  10. SILDENAFIL CITRATE. [Concomitant]
     Active Substance: SILDENAFIL CITRATE

REACTIONS (7)
  - Fluid retention [Not Recovered/Not Resolved]
  - Weight decreased [Unknown]
  - Weight increased [Not Recovered/Not Resolved]
  - Peripheral swelling [Unknown]
  - Hospitalisation [Unknown]
  - Diarrhoea [Recovering/Resolving]
  - Balance disorder [Unknown]

NARRATIVE: CASE EVENT DATE: 201708
